FAERS Safety Report 7699614-5 (Version None)
Quarter: 2011Q3

REPORT INFORMATION
  Report Type: 
  Country: None (occurrence: None)
  Receive Date: 20110822
  Receipt Date: 20110811
  Transmission Date: 20111222
  Serious: No
  Sender: FDA-Public Use
  Company Number: US-BIOGENIDEC-2010BI029843

PATIENT
  Age: 34 Year
  Sex: Male

DRUGS (2)
  1. TYSABRI [Suspect]
     Route: 042
     Dates: start: 20100901, end: 20110105
  2. TYSABRI [Suspect]
     Indication: MULTIPLE SCLEROSIS
     Route: 042
     Dates: start: 20071011, end: 20081103

REACTIONS (27)
  - TREMOR [None]
  - DECREASED APPETITE [None]
  - BRAIN OEDEMA [None]
  - POOR PERIPHERAL CIRCULATION [None]
  - HYPOAESTHESIA [None]
  - SKIN DISCOLOURATION [None]
  - FOOT FRACTURE [None]
  - PARAESTHESIA [None]
  - URINARY INCONTINENCE [None]
  - LOSS OF CONTROL OF LEGS [None]
  - OEDEMA PERIPHERAL [None]
  - ABASIA [None]
  - NUCLEAR MAGNETIC RESONANCE IMAGING BRAIN ABNORMAL [None]
  - ALOPECIA [None]
  - MUSCLE RUPTURE [None]
  - DIPLEGIA [None]
  - BACTERIAL INFECTION [None]
  - MULTIPLE SCLEROSIS RELAPSE [None]
  - CYANOSIS [None]
  - DECREASED IMMUNE RESPONSIVENESS [None]
  - MUSCLE DISORDER [None]
  - MUSCLE TWITCHING [None]
  - ASTHENIA [None]
  - WHITE BLOOD CELL COUNT INCREASED [None]
  - WEIGHT DECREASED [None]
  - SPINAL CORD OEDEMA [None]
  - CONFUSIONAL STATE [None]
